FAERS Safety Report 5329410-5 (Version None)
Quarter: 2007Q1

REPORT INFORMATION
  Report Type: 
  Country: None (occurrence: None)
  Receive Date: 20070223
  Receipt Date: 20061010
  Transmission Date: 20070707
  Serious: Yes (Life-Threatening, Hospitalization, Disabling, Other)
  Sender: FDA-Public Use
  Company Number: WAES 0610USA07309

PATIENT
  Age: 72 Year
  Sex: Male

DRUGS (13)
  1. ZOCOR [Suspect]
     Indication: HYPERLIPIDAEMIA
     Dosage: 80 MG/DAILY/PO
     Route: 048
     Dates: start: 20060801, end: 20060828
  2. GLYCOLAX [Concomitant]
  3. PLAVIX [Concomitant]
  4. AMIODARONE HCL [Concomitant]
  5. ASPIRIN [Concomitant]
  6. ATAZANAVIR SULFATE [Concomitant]
  7. DELAVIRDINE MESYLATE [Concomitant]
  8. DOCUSATE SODIUM [Concomitant]
  9. FAMOTIDINE [Concomitant]
  10. ISOSORBIDE MONONITRATE [Concomitant]
  11. METOPROLOL SUCCINATE [Concomitant]
  12. STAVUDINE [Concomitant]
  13. TERAZOSIN HYDROCHLORIDE [Concomitant]

REACTIONS (2)
  - RENAL FAILURE ACUTE [None]
  - RHABDOMYOLYSIS [None]
